FAERS Safety Report 21072457 (Version 1)
Quarter: 2022Q3

REPORT INFORMATION
  Report Type: Spontaneous
  Country: US (occurrence: US)
  Receive Date: 20220712
  Receipt Date: 20220712
  Transmission Date: 20221027
  Serious: No
  Sender: FDA-Public Use
  Company Number: US-FOUNDATIONCONSUMERHC-2022-US-014041

PATIENT
  Age: 36 Year
  Sex: Female
  Weight: 77.11 kg

DRUGS (6)
  1. PLAN B ONE-STEP [Suspect]
     Active Substance: LEVONORGESTREL
     Indication: Post coital contraception
     Dosage: 1.5 MG
     Route: 048
     Dates: start: 20220606, end: 20220606
  2. VENLAFAXINE [Concomitant]
     Active Substance: VENLAFAXINE HYDROCHLORIDE
  3. BENZTROPINE [Concomitant]
     Active Substance: BENZTROPINE
  4. CLONAZEPAM [Concomitant]
     Active Substance: CLONAZEPAM
  5. woman vitamin [Concomitant]
  6. oral birth control [Concomitant]
     Route: 048

REACTIONS (4)
  - Intentional product misuse [Recovered/Resolved]
  - Vaginal discharge [Not Recovered/Not Resolved]
  - Product use in unapproved indication [Recovered/Resolved]
  - Menstruation delayed [Not Recovered/Not Resolved]

NARRATIVE: CASE EVENT DATE: 20220606
